FAERS Safety Report 7284932-5 (Version None)
Quarter: 2011Q1

REPORT INFORMATION
  Report Type: 
  Country: None (occurrence: None)
  Receive Date: 20110210
  Receipt Date: 20101228
  Transmission Date: 20110831
  Serious: Yes (Hospitalization, Other)
  Sender: FDA-Public Use
  Company Number: US-BAYER-201029623NA

PATIENT
  Sex: Female
  Weight: 92.971 kg

DRUGS (8)
  1. YAZ [Suspect]
     Indication: PREMENSTRUAL SYNDROME
     Route: 048
     Dates: start: 20080301, end: 20080701
  2. UNCODEABLE ^UNCLASSIFIABLE^ [Concomitant]
     Dosage: 100 MG, UNK
  3. NEXIUM [Concomitant]
     Dosage: 40 MG, UNK
     Dates: start: 20080611
  4. UNCODEABLE ^UNCLASSIFIABLE^ [Concomitant]
     Indication: IRON DEFICIENCY
     Dosage: UNK
     Dates: start: 20080522
  5. DARVOCET-N 100 [Concomitant]
     Indication: MIGRAINE
     Dosage: UNK
  6. HYDROCHLOROTHIAZIDE [Concomitant]
     Dosage: 25 MG, UNK
  7. EFFEXOR XR [Concomitant]
  8. PREVACID [Concomitant]
     Dosage: 30 MG, UNK
     Dates: start: 20080721

REACTIONS (5)
  - PLEURITIC PAIN [None]
  - PULMONARY INFARCTION [None]
  - NON-CARDIAC CHEST PAIN [None]
  - DYSPNOEA [None]
  - PULMONARY EMBOLISM [None]
